FAERS Safety Report 7589583-0 (Version None)
Quarter: 2011Q3

REPORT INFORMATION
  Report Type: 
  Country: None (occurrence: None)
  Receive Date: 20110705
  Receipt Date: 20110628
  Transmission Date: 20111222
  Serious: Yes (Death, Other)
  Sender: FDA-Public Use
  Company Number: IL-ROCHE-786168

PATIENT
  Age: 42 Year
  Sex: Male

DRUGS (3)
  1. IRINOTECAN HYDROCHLORIDE [Concomitant]
     Indication: GLIOBLASTOMA
     Route: 042
     Dates: start: 20070601
  2. CARBOPLATIN [Concomitant]
     Dosage: DOSE: AUC 5
  3. BEVACIZUMAB [Suspect]
     Indication: GLIOBLASTOMA
     Route: 042
     Dates: start: 20070601

REACTIONS (6)
  - AFFECT LABILITY [None]
  - IMPULSIVE BEHAVIOUR [None]
  - DISEASE PROGRESSION [None]
  - APRAXIA [None]
  - ILL-DEFINED DISORDER [None]
  - CONFUSIONAL STATE [None]
